FAERS Safety Report 6741036-5 (Version None)
Quarter: 2010Q2

REPORT INFORMATION
  Report Type: 
  Country: None (occurrence: None)
  Receive Date: 20100526
  Receipt Date: 20100517
  Transmission Date: 20101027
  Serious: Yes (Other)
  Sender: FDA-Public Use
  Company Number: US-JNJFOC-20100301877

PATIENT
  Sex: Male
  Weight: 136.08 kg

DRUGS (17)
  1. TOPAMAX [Suspect]
     Indication: AFFECTIVE DISORDER
     Route: 048
  2. TOPAMAX [Suspect]
     Route: 048
  3. TOPAMAX [Suspect]
     Indication: DECREASED APPETITE
     Route: 048
  4. TOPAMAX [Suspect]
     Route: 048
  5. TOPAMAX [Suspect]
     Indication: WEIGHT LOSS DIET
     Route: 048
  6. TOPAMAX [Suspect]
     Route: 048
  7. GEMFIBROZIL [Concomitant]
     Route: 065
  8. GLIPIZIDE [Concomitant]
     Route: 065
  9. METFORMIN HYDROCHLORIDE [Concomitant]
     Route: 065
  10. DIOVAN [Concomitant]
     Route: 065
  11. VERAPAMIL [Concomitant]
     Route: 065
  12. AMLODIPINE BESYLATE [Concomitant]
     Route: 065
  13. NIASPAN [Concomitant]
     Route: 065
  14. LEVOTHYROXINE SODIUM [Concomitant]
     Route: 065
  15. MV [Concomitant]
     Route: 065
  16. CITALOPRAM [Concomitant]
     Route: 065
  17. SEROQUEL [Concomitant]
     Route: 065

REACTIONS (1)
  - MACULAR DEGENERATION [None]
